FAERS Safety Report 5337146-X (Version None)
Quarter: 2007Q2

REPORT INFORMATION
  Report Type: 
  Country: None (occurrence: None)
  Receive Date: 20070523
  Receipt Date: 20070511
  Transmission Date: 20071010
  Serious: Yes (Hospitalization)
  Sender: FDA-Public Use
  Company Number: S07-GER-02127-01

PATIENT
  Sex: Male

DRUGS (2)
  1. CITALOPRAM HYDROBROMIDE [Suspect]
     Dosage: 20 MG QD PO
     Route: 048
  2. FENISTIL (DIMETINDENE MALEATE) [Concomitant]

REACTIONS (3)
  - HYPOGLYCAEMIA [None]
  - HYPOTHERMIA [None]
  - METABOLIC DISORDER [None]
